FAERS Safety Report 4519004-3 (Version None)
Quarter: 2004Q4

REPORT INFORMATION
  Report Type: 
  Country: None (occurrence: None)
  Receive Date: 20041203
  Receipt Date: 20041203
  Transmission Date: 20050328
  Serious: Yes (Hospitalization)
  Sender: FDA-Public Use
  Company Number: None

PATIENT
  Age: 59 Year
  Sex: Female
  Weight: 106.5953 kg

DRUGS (2)
  1. CARBOPLATIN [Suspect]
     Indication: LARYNGEAL CANCER
     Dosage: 160MG  WEEKLY  INTRAVENOUS
     Route: 042
     Dates: start: 20040428, end: 20040818
  2. TAXOL [Suspect]
     Dosage: 84 MG  WEEKLY INTRAVENOUS
     Route: 042
     Dates: start: 20040428, end: 20040818

REACTIONS (4)
  - CHEST PAIN [None]
  - CHRONIC OBSTRUCTIVE AIRWAYS DISEASE [None]
  - CONFUSIONAL STATE [None]
  - DYSPNOEA [None]
